FAERS Safety Report 7269956-6 (Version None)
Quarter: 2010Q4

REPORT INFORMATION
  Report Type: 
  Country: None (occurrence: None)
  Receive Date: 20101130
  Receipt Date: 20090803
  Transmission Date: 20110411
  Serious: Yes (Hospitalization)
  Sender: FDA-Public Use
  Company Number: 2009-191024-NL

PATIENT
  Age: 32 Year
  Sex: Female
  Weight: 61.2356 kg

DRUGS (5)
  1. NUVARING [Suspect]
     Indication: CONTRACEPTION
     Dosage: 1 DF; VAG
     Route: 067
     Dates: start: 20070101, end: 20070403
  2. ASCORBIC ACID [Concomitant]
  3. VITAMIN D [Concomitant]
  4. METFORMIN [Concomitant]
  5. ADVAIR DISKUS 100/50 [Concomitant]

REACTIONS (2)
  - DEEP VEIN THROMBOSIS [None]
  - PULMONARY EMBOLISM [None]
